FAERS Safety Report 17597947 (Version 1)
Quarter: 2020Q1

REPORT INFORMATION
  Report Type: Spontaneous
  Country: US (occurrence: US)
  Receive Date: 20200327
  Receipt Date: 20200327
  Transmission Date: 20200409
  Serious: Yes (Hospitalization)
  Sender: FDA-Public Use
  Company Number: None

PATIENT
  Age: 59 Year
  Sex: Male

DRUGS (11)
  1. IBUPROFEN. [Concomitant]
     Active Substance: IBUPROFEN
     Dates: start: 20150101, end: 20200326
  2. ALBUTEROL. [Concomitant]
     Active Substance: ALBUTEROL
  3. FOLIC ACID. [Concomitant]
     Active Substance: FOLIC ACID
     Dates: start: 20200218
  4. DEXAMETHASONE. [Concomitant]
     Active Substance: DEXAMETHASONE
     Dates: start: 20200223
  5. HYDROMORPHONE [Concomitant]
     Active Substance: HYDROMORPHONE
     Dates: start: 20191101
  6. BOSUTINIB [Suspect]
     Active Substance: BOSUTINIB
     Indication: NON-SMALL CELL LUNG CANCER
     Route: 048
     Dates: start: 20200225
  7. FENTANYL. [Concomitant]
     Active Substance: FENTANYL
     Dates: start: 20190301
  8. ONDANESTRON [Concomitant]
     Dates: start: 20200310
  9. PEMETREXED. [Suspect]
     Active Substance: PEMETREXED
     Indication: NON-SMALL CELL LUNG CANCER
     Dosage: ?          OTHER FREQUENCY:Q3W;?
     Route: 041
     Dates: start: 20200225
  10. XARELTO [Concomitant]
     Active Substance: RIVAROXABAN
     Dates: start: 20200115
  11. MEGACE [Concomitant]
     Active Substance: MEGESTROL ACETATE
     Dates: start: 20200303

REACTIONS (3)
  - Haemoglobin decreased [None]
  - Clinical trial participant [None]
  - Haematemesis [None]

NARRATIVE: CASE EVENT DATE: 20200326
